FAERS Safety Report 4390432-2 (Version None)
Quarter: 2004Q2

REPORT INFORMATION
  Report Type: 
  Country: None (occurrence: None)
  Receive Date: 20040630
  Receipt Date: 20040614
  Transmission Date: 20050107
  Serious: Yes (Hospitalization)
  Sender: FDA-Public Use
  Company Number: 173740

PATIENT
  Age: 45 Year
  Sex: Female
  Weight: 65.7716 kg

DRUGS (6)
  1. AVONEX [Suspect]
     Indication: MULTIPLE SCLEROSIS
     Dosage: 30 MCG QW IM
     Route: 030
     Dates: start: 19980901
  2. WELLBUTRIN [Concomitant]
  3. REMERON [Concomitant]
  4. ZANAFLEX [Concomitant]
  5. BACLOFEN [Concomitant]
  6. AMBIEN [Concomitant]

REACTIONS (11)
  - GASTRITIS [None]
  - HERPES SIMPLEX [None]
  - INFECTION [None]
  - INJECTION SITE HAEMORRHAGE [None]
  - INTERVERTEBRAL DISC DEGENERATION [None]
  - LIP BLISTER [None]
  - MULTIPLE SCLEROSIS [None]
  - PYREXIA [None]
  - SPINAL COLUMN STENOSIS [None]
  - SWELLING FACE [None]
  - WEIGHT DECREASED [None]
